FAERS Safety Report 8918794 (Version 1)
Quarter: 2012Q4

REPORT INFORMATION
  Report Type: 
  Country: US (occurrence: US)
  Receive Date: 20121120
  Receipt Date: 20121120
  Transmission Date: 20130627
  Serious: No
  Sender: FDA-Public Use
  Company Number: US-ASTRAZENECA-2012SE21164

PATIENT
  Age: 58 Year
  Sex: Female
  Weight: 56.7 kg

DRUGS (7)
  1. NEXIUM [Suspect]
     Indication: GASTROOESOPHAGEAL REFLUX DISEASE
     Dosage: ONCE A DAY
     Route: 048
  2. NEXIUM [Suspect]
     Indication: GASTROOESOPHAGEAL REFLUX DISEASE
     Route: 048
  3. ATACAND HCT [Suspect]
     Indication: HYPERTENSION
     Dosage: 16/12.5 MG, QD
     Route: 048
  4. ZANTAC [Suspect]
     Route: 065
  5. FISH OIL [Concomitant]
     Indication: BLOOD CHOLESTEROL
  6. CELEBREX [Concomitant]
     Indication: BACK PAIN
  7. CYMBALTA [Concomitant]
     Indication: ANXIETY

REACTIONS (7)
  - Anxiety [Unknown]
  - Gastrooesophageal reflux disease [Unknown]
  - Regurgitation [Unknown]
  - Malaise [Unknown]
  - Vomiting [Unknown]
  - Off label use [Unknown]
  - Intentional drug misuse [Unknown]
